FAERS Safety Report 8018786-6 (Version None)
Quarter: 2012Q1

REPORT INFORMATION
  Report Type: 
  Country: None (occurrence: None)
  Receive Date: 20120103
  Receipt Date: 20111228
  Transmission Date: 20120608
  Serious: Yes (Hospitalization)
  Sender: FDA-Public Use
  Company Number: JP-PFIZER INC-2011314525

PATIENT
  Age: 10 Year
  Sex: Female
  Weight: 21.7 kg

DRUGS (7)
  1. DORNER [Concomitant]
     Indication: PULMONARY HYPERTENSION
     Dosage: UNK
     Route: 048
     Dates: start: 20070613
  2. SILDENAFIL CITRATE [Suspect]
     Dosage: 40 MG DAILY, DIVIDED INTO THREE DOSES PER DAY
     Route: 048
     Dates: start: 20090828
  3. ALDACTONE [Concomitant]
     Indication: PULMONARY HYPERTENSION
     Dosage: UNK
     Route: 048
     Dates: start: 20070613
  4. TRACLEER [Concomitant]
     Indication: PULMONARY HYPERTENSION
     Dosage: UNK
     Route: 048
     Dates: start: 20070615
  5. WARFARIN [Concomitant]
     Indication: PROPHYLAXIS
     Dosage: UNK
     Route: 048
     Dates: start: 20070613
  6. SILDENAFIL CITRATE [Suspect]
     Dosage: 20 MG, 3X/DAY
     Route: 048
     Dates: start: 20090409, end: 20090827
  7. FUROSEMIDE [Concomitant]
     Indication: PULMONARY HYPERTENSION
     Dosage: UNK
     Route: 048
     Dates: start: 20070613

REACTIONS (2)
  - MALAISE [None]
  - HEADACHE [None]
